FAERS Safety Report 18911336 (Version 1)
Quarter: 2021Q1

REPORT INFORMATION
  Report Type: Report from Study
  Country: KR (occurrence: KR)
  Receive Date: 20210218
  Receipt Date: 20210218
  Transmission Date: 20210420
  Serious: Yes (Hospitalization)
  Sender: FDA-Public Use
  Company Number: KR-EISAI MEDICAL RESEARCH-EC-2021-088099

PATIENT
  Age: 81 Year
  Sex: Female
  Weight: 54 kg

DRUGS (8)
  1. DUROGESIC [Concomitant]
     Active Substance: FENTANYL
     Indication: PAIN
     Dosage: 12MCG/H 5.25 CM2
     Route: 062
  2. PENNEL [Concomitant]
     Indication: ANTIVIRAL PROPHYLAXIS
     Dosage: 3 CAPSULES PER DAY (DOSAGE NOT PROVIDED)
     Route: 048
     Dates: start: 20200429
  3. ORODIPINE [Concomitant]
     Active Substance: AMLODIPINE OROTATE
     Indication: HYPERTENSION
     Route: 048
     Dates: start: 2019
  4. GLIPTIDE [Concomitant]
     Indication: PROPHYLAXIS
     Route: 048
     Dates: start: 20200228
  5. LENVIMA [Suspect]
     Active Substance: LENVATINIB
     Indication: HEPATOCELLULAR CARCINOMA
     Route: 048
     Dates: start: 20210104, end: 20210123
  6. IRCODON [Concomitant]
     Active Substance: OXYCODONE HYDROCHLORIDE
     Indication: PAIN
     Route: 048
     Dates: start: 20200429, end: 20210108
  7. GASTIIN CR [Concomitant]
     Indication: PROPHYLAXIS
     Dosage: UNKNOWN FREQUENCY
     Route: 048
     Dates: start: 20210104, end: 20210201
  8. FENTADUR [Concomitant]
     Indication: PAIN
     Dosage: 50MCG/H 20 CM2
     Route: 062
     Dates: start: 20210104

REACTIONS (1)
  - Muscular weakness [Recovered/Resolved]

NARRATIVE: CASE EVENT DATE: 20210107
